FAERS Safety Report 5499900-3 (Version None)
Quarter: 2007Q4

REPORT INFORMATION
  Report Type: 
  Country: None (occurrence: None)
  Receive Date: 20071026
  Receipt Date: 20071016
  Transmission Date: 20080405
  Serious: Yes (Other)
  Sender: FDA-Public Use
  Company Number: GB-PFIZER INC-2007087392

PATIENT
  Age: 69 Year
  Sex: Female

DRUGS (1)
  1. CHAMPIX [Suspect]
     Route: 048

REACTIONS (6)
  - AMNESIA [None]
  - ANXIETY [None]
  - BLOOD PRESSURE INCREASED [None]
  - HALLUCINATION [None]
  - NERVOUSNESS [None]
  - PANIC REACTION [None]
